FAERS Safety Report 9498269 (Version 2)
Quarter: 2013Q4

REPORT INFORMATION
  Report Type: Spontaneous
  Country: US (occurrence: US)
  Receive Date: 20130904
  Receipt Date: 20131203
  Transmission Date: 20140711
  Serious: Yes (Hospitalization, Other)
  Sender: FDA-Public Use
  Company Number: US-BAYER-2013-106029

PATIENT
  Age: 23 Year
  Sex: Female
  Weight: 63.49 kg

DRUGS (4)
  1. MIRENA [Suspect]
     Indication: CONTRACEPTION
     Dosage: 20 MCG/24HR, CONT
     Route: 015
     Dates: start: 20110404, end: 20121023
  2. WELLBUTRIN [Concomitant]
     Dosage: 75 MG, UNK
  3. METRONIDAZOLE [Concomitant]
     Dosage: 250 MG, UNK
  4. DOXYCYCLINE [Concomitant]
     Dosage: 100 MG, UNK

REACTIONS (13)
  - Genital haemorrhage [None]
  - Uterine perforation [None]
  - Device dislocation [None]
  - Abdominal pain lower [None]
  - Pelvic pain [None]
  - Back pain [None]
  - Abdominal pain upper [None]
  - Anxiety [None]
  - Shock [None]
  - Nerve injury [None]
  - Emotional distress [None]
  - Anhedonia [None]
  - Depression [None]
